FAERS Safety Report 4424355-7 (Version None)
Quarter: 2004Q3

REPORT INFORMATION
  Report Type: 
  Country: None (occurrence: None)
  Receive Date: 20040715
  Receipt Date: 20040406
  Transmission Date: 20050211
  Serious: Yes (Other)
  Sender: FDA-Public Use
  Company Number: 2004207865US

PATIENT
  Age: 70 Year
  Sex: Male

DRUGS (1)
  1. CELEBREX [Suspect]
     Indication: LOCALISED OSTEOARTHRITIS

REACTIONS (1)
  - GASTRIC ULCER HAEMORRHAGE [None]
